FAERS Safety Report 19921284 (Version 1)
Quarter: 2021Q4

REPORT INFORMATION
  Report Type: Spontaneous
  Country: US (occurrence: US)
  Receive Date: 20211005
  Receipt Date: 20211005
  Transmission Date: 20220303
  Serious: No
  Sender: FDA-Public Use
  Company Number: US-ADAMAS PHARMA, LLC-2021ADA02000

PATIENT
  Age: 68 Year
  Sex: Male

DRUGS (7)
  1. GOCOVRI [Suspect]
     Active Substance: AMANTADINE
     Indication: Parkinson^s disease
     Dosage: 274 MG, 1X/DAY, AT BEDTIME
     Route: 048
     Dates: end: 202106
  2. GOCOVRI [Suspect]
     Active Substance: AMANTADINE
     Dosage: 274 MG, 1X/DAY, AT BEDTIME
     Route: 048
     Dates: start: 202106
  3. STALEVO [Concomitant]
     Active Substance: CARBIDOPA\ENTACAPONE\LEVODOPA
     Dosage: EVERY 3 HOURS
  4. AZILECT [Concomitant]
     Active Substance: RASAGILINE MESYLATE
     Dosage: UNK
  5. ROPINIROLE [Concomitant]
     Active Substance: ROPINIROLE
     Dosage: 8 MG, 1X/DAY
  6. VITAMIN D [Concomitant]
     Active Substance: VITAMIN D NOS
  7. DEEP BRAIN STIMULATION [Concomitant]

REACTIONS (6)
  - Medical device site oedema [Recovering/Resolving]
  - Complication associated with device [Recovering/Resolving]
  - Gait inability [Recovering/Resolving]
  - Fall [Recovered/Resolved]
  - Product availability issue [Recovered/Resolved]
  - Product packaging quantity issue [Recovered/Resolved]

NARRATIVE: CASE EVENT DATE: 20210601
